FAERS Safety Report 6879543-7 (Version None)
Quarter: 2010Q3

REPORT INFORMATION
  Report Type: 
  Country: None (occurrence: None)
  Receive Date: 20100728
  Receipt Date: 20100713
  Transmission Date: 20110219
  Serious: Yes (Other)
  Sender: FDA-Public Use
  Company Number: PHHY2010CA47401

PATIENT
  Age: 33 Year
  Sex: Female

DRUGS (2)
  1. LOPRESSOR [Suspect]
     Dosage: 25 MG, BID
     Route: 048
  2. MULTI-VITAMINS [Concomitant]

REACTIONS (2)
  - CAESAREAN SECTION [None]
  - DRUG EXPOSURE DURING PREGNANCY [None]
